FAERS Safety Report 5531229-7 (Version None)
Quarter: 2007Q4

REPORT INFORMATION
  Report Type: 
  Country: None (occurrence: None)
  Receive Date: 20071130
  Receipt Date: 20071121
  Transmission Date: 20080405
  Serious: Yes (Hospitalization, Other)
  Sender: FDA-Public Use
  Company Number: JP-ABBOTT-07P-087-0422072-00

PATIENT
  Sex: Male
  Weight: 65.3 kg

DRUGS (4)
  1. CEFZON [Suspect]
     Indication: GASTROENTERITIS
     Route: 048
     Dates: start: 20071011, end: 20071014
  2. LYSOZYME HYDROCHLORIDE [Concomitant]
     Indication: DRUG USE FOR UNKNOWN INDICATION
     Dates: start: 20071012, end: 20071014
  3. ALBUMIN TANNATE [Concomitant]
     Indication: DRUG USE FOR UNKNOWN INDICATION
     Dates: start: 20071012, end: 20071014
  4. LOPERAMIDE HYDROCHLORIDE [Concomitant]
     Indication: DRUG USE FOR UNKNOWN INDICATION
     Dates: start: 20071012, end: 20071014

REACTIONS (2)
  - CONJUNCTIVAL HYPERAEMIA [None]
  - STEVENS-JOHNSON SYNDROME [None]
